FAERS Safety Report 8498592-9 (Version None)
Quarter: 2012Q3

REPORT INFORMATION
  Report Type: 
  Country: None (occurrence: None)
  Receive Date: 20120709
  Receipt Date: 20120626
  Transmission Date: 20120928
  Serious: Yes (Other)
  Sender: FDA-Public Use
  Company Number: US-AMGEN-USASP2011054612

PATIENT
  Age: 59 Year
  Sex: Female
  Weight: 75.737 kg

DRUGS (7)
  1. ENBREL [Suspect]
     Indication: RHEUMATOID ARTHRITIS
     Dosage: 50 MG, QWK
     Dates: start: 20080120, end: 20111209
  2. ENBREL [Suspect]
     Indication: PSORIATIC ARTHROPATHY
     Dosage: 50 MG, INTERMITTENT
     Route: 058
     Dates: start: 20070101
  3. PREDNISONE [Concomitant]
     Dosage: UNK
     Dates: start: 20111201
  4. METFORMIN HCL [Concomitant]
     Dosage: UNK
  5. ALEVE [Concomitant]
     Dosage: UNK UNK, PRN
  6. IBUPROFEN (ADVIL) [Concomitant]
     Dosage: UNK UNK, PRN
  7. GABAPENTIN [Concomitant]
     Dosage: UNK UNK, TID

REACTIONS (5)
  - EAR PAIN [None]
  - RHEUMATOID ARTHRITIS [None]
  - FOOT FRACTURE [None]
  - LOCALISED INFECTION [None]
  - GLOSSODYNIA [None]
